FAERS Safety Report 4375893-7 (Version None)
Quarter: 2004Q2

REPORT INFORMATION
  Report Type: 
  Country: None (occurrence: None)
  Receive Date: 20040609
  Receipt Date: 20040609
  Transmission Date: 20050107
  Serious: Yes (Hospitalization)
  Sender: FDA-Public Use
  Company Number: None

PATIENT
  Sex: Female

DRUGS (11)
  1. HEPARIN SODIUM 25,000 UNITS AND DEXTROSE 5% [Suspect]
     Indication: ATRIAL FIBRILLATION
     Dosage: IV @950UNITS/HR
     Route: 042
     Dates: start: 20040323
  2. PREVACID [Concomitant]
  3. DOCUSATE [Concomitant]
  4. TEMAZEPAM [Concomitant]
  5. FERROUS GLUCONATE [Concomitant]
  6. DIGOXIN [Concomitant]
  7. FOLIC ACID [Concomitant]
  8. OXYCODONE AND ACETAMINOPHEN [Concomitant]
  9. BUMETANIDE [Concomitant]
  10. M.V.I. [Concomitant]
  11. WARFARIN SODIUM [Concomitant]

REACTIONS (5)
  - ACTIVATED PARTIAL THROMBOPLASTIN TIME PROLONGED [None]
  - DISEASE RECURRENCE [None]
  - DIVERTICULITIS [None]
  - GASTRIC POLYPS [None]
  - GASTROINTESTINAL HAEMORRHAGE [None]
